FAERS Safety Report 14552047 (Version 2)
Quarter: 2018Q2

REPORT INFORMATION
  Report Type: Spontaneous
  Country: US (occurrence: US)
  Receive Date: 20180220
  Receipt Date: 20180515
  Transmission Date: 20180711
  Serious: No
  Sender: FDA-Public Use
  Company Number: US-PFIZER INC-2018054019

PATIENT
  Age: 59 Year
  Sex: Female
  Weight: 72.56 kg

DRUGS (18)
  1. LISINOPRIL. [Concomitant]
     Active Substance: LISINOPRIL
     Dosage: UNK
     Dates: start: 20060101, end: 20161231
  2. KLOR-CON [Concomitant]
     Active Substance: POTASSIUM CHLORIDE
     Dosage: UNK
     Dates: start: 20060101, end: 20161231
  3. ATORVASTATIN [Concomitant]
     Active Substance: ATORVASTATIN
     Dosage: UNK
     Dates: start: 20060101, end: 20161231
  4. FUROSEMIDE. [Concomitant]
     Active Substance: FUROSEMIDE
     Dosage: UNK
     Dates: start: 20060101, end: 20161231
  5. PEGFILGRASTIM [Concomitant]
     Active Substance: PEGFILGRASTIM
  6. SODIUM CHLORIDE. [Concomitant]
     Active Substance: SODIUM CHLORIDE
  7. GRANISETRON HCL [Concomitant]
  8. HERCEPTIN [Concomitant]
     Active Substance: TRASTUZUMAB
  9. EMEND [Concomitant]
     Active Substance: APREPITANT
  10. TAXOTERE [Suspect]
     Active Substance: DOCETAXEL
     Indication: BREAST CANCER
     Dosage: 131MG-133MG, EVERY 3 WEEKS (NUMBER OF CYCLES 4)
     Dates: start: 20150217, end: 20150421
  11. ARIMIDEX [Concomitant]
     Active Substance: ANASTROZOLE
     Dosage: UNK
     Dates: start: 20150804
  12. HEPARIN SODIUM. [Concomitant]
     Active Substance: HEPARIN SODIUM
  13. BAYER ASPIRIN [Concomitant]
     Active Substance: ASPIRIN
     Dosage: UNK
     Dates: start: 20060101, end: 20161231
  14. CITALOPRAM [Concomitant]
     Active Substance: CITALOPRAM HYDROBROMIDE
     Dosage: UNK
     Dates: start: 20060101, end: 20161231
  15. CARVEDILOL. [Concomitant]
     Active Substance: CARVEDILOL
     Dosage: UNK
     Dates: start: 20060101, end: 20161231
  16. DOCETAXEL. [Suspect]
     Active Substance: DOCETAXEL
     Indication: BREAST CANCER FEMALE
     Dosage: 131MG-133MG, EVERY 3 WEEKS (NUMBER OF CYCLES 4)
     Dates: start: 20150217, end: 20150421
  17. PARAPLATIN [Concomitant]
     Active Substance: CARBOPLATIN
     Dosage: CYCLIC (4 CYCLES)
  18. DEXAMETHASONE SODIUM PHOSPHATE. [Concomitant]
     Active Substance: DEXAMETHASONE SODIUM PHOSPHATE

REACTIONS (5)
  - Madarosis [Not Recovered/Not Resolved]
  - Hair colour changes [Not Recovered/Not Resolved]
  - Hair texture abnormal [Not Recovered/Not Resolved]
  - Hair disorder [Not Recovered/Not Resolved]
  - Alopecia [Not Recovered/Not Resolved]

NARRATIVE: CASE EVENT DATE: 20151021
